FAERS Safety Report 4836605-3 (Version None)
Quarter: 2005Q4

REPORT INFORMATION
  Report Type: 
  Country: None (occurrence: None)
  Receive Date: 20051118
  Receipt Date: 20051107
  Transmission Date: 20060501
  Serious: Yes (Hospitalization)
  Sender: FDA-Public Use
  Company Number: 2005BI008292

PATIENT
  Sex: Female

DRUGS (7)
  1. AVONEX [Suspect]
     Indication: MULTIPLE SCLEROSIS
     Dosage: 30 UG; QW; IM
     Route: 030
     Dates: start: 20020103
  2. AVONEX [Suspect]
     Indication: MULTIPLE SCLEROSIS
     Dosage: 30 UG; QW; IM
     Route: 030
  3. BACLOFEN [Concomitant]
  4. ZANAFLEX [Concomitant]
  5. SOMA [Concomitant]
  6. NEURONTIN [Concomitant]
  7. ELAVIL [Concomitant]

REACTIONS (7)
  - ABDOMINAL DISTENSION [None]
  - BLOOD SODIUM INCREASED [None]
  - DYSPEPSIA [None]
  - GASTROOESOPHAGEAL REFLUX DISEASE [None]
  - INTESTINAL OBSTRUCTION [None]
  - OEDEMA PERIPHERAL [None]
  - VOMITING [None]
